FAERS Safety Report 10486847 (Version 1)
Quarter: 2014Q4

REPORT INFORMATION
  Report Type: Spontaneous
  Country: AU (occurrence: AU)
  Receive Date: 20141001
  Receipt Date: 20141001
  Transmission Date: 20150528
  Serious: Yes (Disabling)
  Sender: FDA-Public Use
  Company Number: AU-SA-2014SA133561

PATIENT
  Sex: Female
  Weight: 136 kg

DRUGS (11)
  1. METOCLOPRAMIDE HYDROCHLORIDE. [Concomitant]
     Active Substance: METOCLOPRAMIDE HYDROCHLORIDE
     Route: 065
  2. NORSPAN [Concomitant]
     Active Substance: BUPRENORPHINE
     Route: 062
  3. MICROGYNON [Concomitant]
     Active Substance: ETHINYL ESTRADIOL\LEVONORGESTREL ACETATE
  4. ENDONE [Concomitant]
     Active Substance: OXYCODONE HYDROCHLORIDE
  5. INDERAL [Concomitant]
     Active Substance: PROPRANOLOL HYDROCHLORIDE
     Route: 065
  6. PHENERGAN [Concomitant]
     Active Substance: PROMETHAZINE HYDROCHLORIDE
     Route: 065
  7. TARGIN [Concomitant]
     Active Substance: NALOXONE HYDROCHLORIDE\OXYCODONE HYDROCHLORIDE
  8. RHINOCORT AQUA [Concomitant]
     Active Substance: BUDESONIDE
     Route: 065
  9. STILNOX [Suspect]
     Active Substance: ZOLPIDEM TARTRATE
     Route: 065
     Dates: end: 20140728
  10. DEXAMFETAMINE [Concomitant]
     Active Substance: DEXTROAMPHETAMINE
     Route: 065
  11. FENTANYL. [Concomitant]
     Active Substance: FENTANYL

REACTIONS (2)
  - Hyperhidrosis [Recovered/Resolved]
  - Feeling abnormal [Recovered/Resolved]
